FAERS Safety Report 25767045 (Version 1)
Quarter: 2025Q3

REPORT INFORMATION
  Report Type: Spontaneous
  Country: US (occurrence: None)
  Receive Date: 20250904
  Receipt Date: 20250904
  Transmission Date: 20251020
  Serious: Yes (Other)
  Sender: FDA-CTU
  Company Number: None

PATIENT
  Age: 26 Year
  Sex: Female
  Weight: 69.75 kg

DRUGS (1)
  1. EFFEXOR [Suspect]
     Active Substance: VENLAFAXINE HYDROCHLORIDE

REACTIONS (5)
  - Therapy interrupted [None]
  - Mental impairment [None]
  - Withdrawal syndrome [None]
  - Tremor [None]
  - Feeling jittery [None]

NARRATIVE: CASE EVENT DATE: 20180404
